FAERS Safety Report 4269928-X (Version None)
Quarter: 2004Q1

REPORT INFORMATION
  Report Type: 
  Country: None (occurrence: None)
  Receive Date: 20040113
  Receipt Date: 20040113
  Transmission Date: 20041129
  Serious: Yes (Hospitalization)
  Sender: FDA-Public Use
  Company Number: None

PATIENT
  Age: 34 Year
  Sex: Female
  Weight: 82.6 kg

DRUGS (3)
  1. KEFZOL [Suspect]
     Indication: PANCREATICODUODENECTOMY
     Dosage: 4G, 1G Q 6H, INTRAVEN
     Route: 042
     Dates: start: 20031007, end: 20031012
  2. KEFZOL [Suspect]
     Indication: POSTOPERATIVE CARE
     Dosage: 4G, 1G Q 6H, INTRAVEN
     Route: 042
     Dates: start: 20031007, end: 20031012
  3. METRONIDAZOLE [Concomitant]

REACTIONS (1)
  - RASH [None]
